FAERS Safety Report 23553040 (Version 1)
Quarter: 2024Q1

REPORT INFORMATION
  Report Type: Spontaneous
  Country: US (occurrence: None)
  Receive Date: 20240221
  Receipt Date: 20240221
  Transmission Date: 20240410
  Serious: Yes (Death)
  Sender: FDA-Public Use
  Company Number: None

PATIENT
  Age: 54 Year
  Sex: Female
  Weight: 56.9 kg

DRUGS (1)
  1. CARVYKTI [Suspect]
     Active Substance: CILTACABTAGENE AUTOLEUCEL
     Indication: Plasma cell myeloma
     Dosage: 1 TOT-- TOTAL ONCE INTRAVENOUS
     Route: 042
     Dates: start: 20231012, end: 20231012

REACTIONS (2)
  - Plasma cell myeloma refractory [None]
  - Treatment failure [None]

NARRATIVE: CASE EVENT DATE: 20240219
